FAERS Safety Report 10144192 (Version 2)
Quarter: 2014Q2

REPORT INFORMATION
  Report Type: Report from Study
  Country: US (occurrence: US)
  Receive Date: 20140430
  Receipt Date: 20140617
  Transmission Date: 20141212
  Serious: Yes (Hospitalization)
  Sender: FDA-Public Use
  Company Number: US-ACTELION-A-NJ2014-97937

PATIENT
  Age: 76 Year
  Sex: Female

DRUGS (13)
  1. TRACLEER [Suspect]
     Indication: PULMONARY ARTERIAL HYPERTENSION
     Dosage: 62.5 MG, BID
     Route: 048
  2. COUMADIN [Concomitant]
     Dosage: 7.5 MG, UNK
  3. ZOCOR [Concomitant]
     Dosage: 20 MG, UNK
  4. RESTASIS [Concomitant]
     Dosage: 0.5 MG, BID
  5. ACTONEL [Concomitant]
     Dosage: 150 MG, Q1MONTH
  6. METOPROLOL [Concomitant]
     Dosage: 50 MG, UNK
  7. DIGOXIN [Concomitant]
     Dosage: 025 MG, QD
  8. MULTIVITAMIN [Concomitant]
     Dosage: 1 TABLET, UNK
  9. VITAMIN C [Concomitant]
     Dosage: 1000 MG, UNK
  10. VITAMIN B12 [Concomitant]
     Dosage: 1000 MG, UNK
  11. CALCIUM [Concomitant]
     Dosage: 600 MG, UNK
  12. IRON [Concomitant]
     Dosage: 45 MG, BID
  13. DULCOLAX [Concomitant]
     Dosage: 1 UNK, QPM

REACTIONS (2)
  - Hernia [Recovered/Resolved]
  - Hernia repair [Recovered/Resolved]
